FAERS Safety Report 6781918-1 (Version None)
Quarter: 2010Q2

REPORT INFORMATION
  Report Type: 
  Country: None (occurrence: None)
  Receive Date: 20100618
  Receipt Date: 20100618
  Transmission Date: 20101027
  Serious: No
  Sender: FDA-Public Use
  Company Number: None

PATIENT

DRUGS (4)
  1. OXYTROL [Suspect]
     Indication: MICTURITION URGENCY
     Dosage: AS DIRECTED, TWICE WEEKLY
     Dates: start: 20100605
  2. OXYTROL [Suspect]
     Indication: MICTURITION URGENCY
     Dosage: AS DIRECTED, TWICE WEEKLY
     Dates: start: 20100608
  3. OXYTROL [Suspect]
  4. OXYTROL [Suspect]

REACTIONS (3)
  - DRUG INEFFECTIVE [None]
  - MICTURITION URGENCY [None]
  - PRODUCT QUALITY ISSUE [None]
